FAERS Safety Report 17259634 (Version 4)
Quarter: 2020Q2

REPORT INFORMATION
  Report Type: Spontaneous
  Country: US (occurrence: US)
  Receive Date: 20200110
  Receipt Date: 20200411
  Transmission Date: 20200713
  Serious: Yes (Other)
  Sender: FDA-Public Use
  Company Number: NVSC2020US004226

PATIENT
  Age: 1 Year
  Sex: Female
  Weight: 8 kg

DRUGS (8)
  1. ZOLGENSMA [Suspect]
     Active Substance: ONASEMNOGENE ABEPARVOVEC-XIOI
     Indication: SPINAL MUSCULAR ATROPHY
     Dosage: 44 ML, ONCE/SINGLE
     Route: 042
     Dates: start: 20191127, end: 20191127
  2. PREDNISOLONE. [Concomitant]
     Active Substance: PREDNISOLONE
     Dosage: 5.3 ML, QD
     Route: 048
     Dates: start: 20200102, end: 20200128
  3. PREDNISOLONE. [Concomitant]
     Active Substance: PREDNISOLONE
     Dosage: 1.5 ML, QD
     Route: 048
     Dates: start: 20200313, end: 20200326
  4. PREDNISOLONE. [Concomitant]
     Active Substance: PREDNISOLONE
     Dosage: 0.75 ML, QD
     Route: 048
     Dates: start: 20200326, end: 20200407
  5. PREDNISOLONE. [Concomitant]
     Active Substance: PREDNISOLONE
     Indication: PRODUCT USED FOR UNKNOWN INDICATION
     Dosage: 8 MG, QD
     Route: 048
     Dates: start: 20191126, end: 20200102
  6. PREDNISOLONE. [Concomitant]
     Active Substance: PREDNISOLONE
     Dosage: 2.67 ML, QD
     Route: 048
     Dates: start: 20200211, end: 20200225
  7. PREDNISOLONE. [Concomitant]
     Active Substance: PREDNISOLONE
     Dosage: 2.25 ML, QD
     Route: 048
     Dates: start: 20200225, end: 20200313
  8. PREDNISOLONE. [Concomitant]
     Active Substance: PREDNISOLONE
     Dosage: 4 ML, QD
     Route: 048
     Dates: start: 20200128, end: 20200211

REACTIONS (6)
  - Aspartate aminotransferase increased [Recovering/Resolving]
  - Blood alkaline phosphatase increased [Recovering/Resolving]
  - Alanine aminotransferase increased [Recovering/Resolving]
  - Liver function test increased [Recovering/Resolving]
  - Hepatic enzyme increased [Recovered/Resolved]
  - Thrombocytopenia [Recovered/Resolved]

NARRATIVE: CASE EVENT DATE: 20191127
